FAERS Safety Report 21111720 (Version 2)
Quarter: 2022Q3

REPORT INFORMATION
  Report Type: Spontaneous
  Country: US (occurrence: US)
  Receive Date: 20220721
  Receipt Date: 20220825
  Transmission Date: 20221026
  Serious: Yes (Hospitalization)
  Sender: FDA-Public Use
  Company Number: US-BIOGEN-2021BI01046574

PATIENT
  Sex: Male

DRUGS (15)
  1. VUMERITY [Suspect]
     Active Substance: DIROXIMEL FUMARATE
     Indication: Multiple sclerosis
     Dosage: TAKE 2 CAPSULES (462MG) BY MOUTH TWICE DAILY.
     Route: 050
     Dates: start: 20210718
  2. VUMERITY [Suspect]
     Active Substance: DIROXIMEL FUMARATE
     Dosage: TAKE 2 CAPSULES (462MG) BY MOUTH TWICE DAILY
     Route: 050
  3. VUMERITY [Suspect]
     Active Substance: DIROXIMEL FUMARATE
     Route: 050
     Dates: start: 20210718
  4. VUMERITY [Suspect]
     Active Substance: DIROXIMEL FUMARATE
     Route: 050
     Dates: start: 20210714
  5. PLAVIX [Concomitant]
     Active Substance: CLOPIDOGREL BISULFATE
     Indication: Product used for unknown indication
     Route: 050
  6. CARAFATE [Concomitant]
     Active Substance: SUCRALFATE
     Indication: Product used for unknown indication
     Route: 050
  7. PROTONIX [Concomitant]
     Active Substance: PANTOPRAZOLE SODIUM
     Indication: Product used for unknown indication
     Route: 050
  8. GABAPENTIN [Concomitant]
     Active Substance: GABAPENTIN
     Indication: Product used for unknown indication
     Route: 050
  9. BROMOCRIPTINE MESYLATE [Concomitant]
     Active Substance: BROMOCRIPTINE MESYLATE
     Indication: Product used for unknown indication
     Route: 050
  10. SERTRALINE HYDROCHLORIDE [Concomitant]
     Active Substance: SERTRALINE HYDROCHLORIDE
     Indication: Product used for unknown indication
     Route: 050
  11. BACLOFEN [Concomitant]
     Active Substance: BACLOFEN
     Indication: Product used for unknown indication
     Route: 050
  12. VITAMIN B1 [Concomitant]
     Active Substance: THIAMINE HYDROCHLORIDE
     Indication: Product used for unknown indication
     Route: 050
  13. VITAMIN B12 [Concomitant]
     Active Substance: CYANOCOBALAMIN
     Indication: Product used for unknown indication
     Route: 050
  14. VITAMIN D [Concomitant]
     Active Substance: VITAMIN D NOS
     Indication: Product used for unknown indication
     Route: 050
  15. IRON [Concomitant]
     Active Substance: IRON
     Indication: Product used for unknown indication
     Route: 050

REACTIONS (13)
  - Multiple sclerosis [Recovered/Resolved]
  - Product dose omission issue [Unknown]
  - Product dose omission in error [Unknown]
  - Motor dysfunction [Not Recovered/Not Resolved]
  - Hypotonia [Not Recovered/Not Resolved]
  - Gait disturbance [Unknown]
  - Dysgraphia [Unknown]
  - Muscular weakness [Unknown]
  - Pain in extremity [Unknown]
  - Depression [Unknown]
  - Drug ineffective [Unknown]
  - Fatigue [Unknown]
  - Flushing [Unknown]
